FAERS Safety Report 8979027 (Version 1)
Quarter: 2013Q1

REPORT INFORMATION
  Report Type: Spontaneous
  Country: US (occurrence: None)
  Receive Date: 20121218
  Receipt Date: 20121218
  Transmission Date: 20140127
  Serious: Yes (Hospitalization)
  Sender: FDA-Public Use
  Company Number: None

PATIENT
  Age: 76 Year
  Sex: Female
  Weight: 94.9 kg

DRUGS (10)
  1. 5-FU [Suspect]
     Indication: PANCREATIC CARCINOMA
     Dates: start: 20120906
  2. IRINOTECAN [Suspect]
  3. OXALIPLATIN [Suspect]
  4. AMLODIPINE [Concomitant]
  5. GABAPENTIN [Concomitant]
  6. PRILOSEC [Concomitant]
  7. ASPIRIN [Concomitant]
  8. ATENOLOL [Concomitant]
  9. FLONASE [Concomitant]
  10. GLIMEPIRIDE [Concomitant]

REACTIONS (5)
  - Abdominal pain [None]
  - Nausea [None]
  - Vomiting [None]
  - Febrile neutropenia [None]
  - Diarrhoea [None]
